FAERS Safety Report 10396311 (Version 1)
Quarter: 2014Q1

REPORT INFORMATION
  Report Type: Spontaneous
  Country: US (occurrence: None)
  Receive Date: 20130815
  Receipt Date: 20130815
  Transmission Date: 20141002
  Serious: Yes (Other)
  Sender: FDA-Public Use
  Company Number: ADR-2012-01210

PATIENT
  Sex: Female

DRUGS (1)
  1. BACLOFEN INTRATHECAL (BACLOFEN INJECTION) [Suspect]
     Indication: MUSCLE SPASTICITY
     Dosage: 1100 MCG/DAY

REACTIONS (4)
  - Diplopia [None]
  - Nervous system disorder [None]
  - Muscle spasticity [None]
  - Dysphagia [None]
